FAERS Safety Report 10711452 (Version 1)
Quarter: 2015Q1

REPORT INFORMATION
  Report Type: Spontaneous
  Country: US (occurrence: US)
  Receive Date: 20150114
  Receipt Date: 20150114
  Transmission Date: 20150721
  Serious: Yes (Hospitalization, Other)
  Sender: FDA-Public Use
  Company Number: US-PFIZER INC-2015010836

PATIENT
  Age: 40 Year
  Sex: Female
  Weight: 68 kg

DRUGS (7)
  1. GABAPENTIN. [Suspect]
     Active Substance: GABAPENTIN
     Indication: ARACHNOID CYST
     Dosage: UNKNOWN DOSE, EQUIVALENT TO 600MG OF LYRICA
  2. FENTANYL. [Concomitant]
     Active Substance: FENTANYL
     Dosage: 200 ?G, ALTERNATE DAY
     Route: 061
  3. LAMICTAL [Concomitant]
     Active Substance: LAMOTRIGINE
     Dosage: 300 MG, DAILY
     Route: 048
  4. HYDROCORTISONE. [Concomitant]
     Active Substance: HYDROCORTISONE
     Dosage: 20 MG, DAILY
     Route: 048
  5. HGH [Concomitant]
     Dosage: 2 MG, DAILY
  6. AUBAGIO [Concomitant]
     Active Substance: TERIFLUNOMIDE
     Dosage: 14 MG, DAILY
     Route: 048
  7. LYRICA [Suspect]
     Active Substance: PREGABALIN
     Dosage: 600 MG, DAILY

REACTIONS (4)
  - Nervous system disorder [Unknown]
  - Drug ineffective [Unknown]
  - Pain in extremity [Unknown]
  - Multiple sclerosis [Not Recovered/Not Resolved]

NARRATIVE: CASE EVENT DATE: 2004
